FAERS Safety Report 4626670-0 (Version None)
Quarter: 2005Q2

REPORT INFORMATION
  Report Type: 
  Country: None (occurrence: None)
  Receive Date: 20050405
  Receipt Date: 20050131
  Transmission Date: 20051028
  Serious: Yes (Hospitalization)
  Sender: FDA-Public Use
  Company Number: 200510385JP

PATIENT
  Age: 50 Year
  Sex: Male
  Weight: 57.5 kg

DRUGS (11)
  1. TAXOTERE [Suspect]
     Indication: METASTASES TO LUNG
     Route: 041
     Dates: start: 20050118, end: 20050118
  2. ANTINEOPLASTIC AND IMMUNOSUPPRESSIVE AGENTS [Suspect]
     Indication: METASTASES TO LUNG
     Route: 048
     Dates: start: 20050118, end: 20050124
  3. PREDONINE [Concomitant]
     Route: 048
     Dates: start: 20040721
  4. CEPHARANTHIN [Concomitant]
     Route: 048
     Dates: start: 20040210
  5. LAC B [Concomitant]
     Route: 048
     Dates: start: 20031216
  6. LENDORM [Concomitant]
     Route: 048
     Dates: start: 20031216
  7. MAGLAX [Concomitant]
     Route: 048
     Dates: start: 20031216
  8. GASTER [Concomitant]
     Route: 048
     Dates: start: 20040721
  9. EXCEGRAN [Concomitant]
     Route: 048
     Dates: start: 20040909
  10. TOPOTECIN [Concomitant]
     Indication: METASTASES TO LUNG
     Dates: start: 20040128, end: 20041201
  11. CISPLATIN [Concomitant]
     Indication: METASTASES TO LUNG
     Dates: start: 20040714, end: 20041201

REACTIONS (1)
  - PANCREATITIS ACUTE [None]
